FAERS Safety Report 8689056 (Version 2)
Quarter: 2012Q4

REPORT INFORMATION
  Report Type: 
  Country: US (occurrence: US)
  Receive Date: 20120727
  Receipt Date: 20121112
  Transmission Date: 20130627
  Serious: No
  Sender: FDA-Public Use
  Company Number: US-ASTRAZENECA-2011SE74103

PATIENT
  Age: 26 Year
  Sex: Female
  Weight: 53.5 kg

DRUGS (6)
  1. SEROQUEL [Suspect]
     Indication: BIPOLAR DISORDER
     Route: 048
     Dates: start: 2009
  2. SEROQUEL [Suspect]
     Indication: ANXIETY
     Route: 048
     Dates: start: 2009
  3. TRI SPRINTEC [Concomitant]
     Indication: CONTRACEPTION
  4. PRISTIQ [Concomitant]
     Indication: CONTRACEPTION
  5. CECLORE [Concomitant]
  6. SATRA [Concomitant]

REACTIONS (7)
  - Headache [Unknown]
  - Nausea [Unknown]
  - Malaise [Unknown]
  - Psychotic disorder [Unknown]
  - Dizziness [Unknown]
  - Somnolence [Unknown]
  - Drug dose omission [Unknown]
